FAERS Safety Report 8875847 (Version 1)
Quarter: 2012Q4

REPORT INFORMATION
  Report Type: 
  Country: DE (occurrence: DE)
  Receive Date: 20121030
  Receipt Date: 20121030
  Transmission Date: 20130627
  Serious: Yes (Other)
  Sender: FDA-Public Use
  Company Number: DE-GLAXOSMITHKLINE-D0077464A

PATIENT
  Age: 43 Year
  Sex: Female
  Weight: 64 kg

DRUGS (5)
  1. VOTRIENT [Suspect]
     Indication: SARCOMA
     Dosage: 80MG per day
     Route: 048
     Dates: start: 20120907, end: 201210
  2. L-THYROXIN [Concomitant]
     Dosage: 100UG Per day
     Route: 048
  3. PANTOZOL [Concomitant]
     Dosage: 20MG Per day
     Route: 048
  4. ANTHRACYCLINES [Concomitant]
     Indication: CHEMOTHERAPY
     Route: 065
  5. IFOSPHAMIDE [Concomitant]
     Indication: CHEMOTHERAPY
     Route: 065

REACTIONS (4)
  - Cardiac disorder [Recovered/Resolved]
  - Respiratory distress [Recovered/Resolved]
  - Orthopnoea [Recovered/Resolved]
  - Cardiac failure acute [Recovered/Resolved]
